FAERS Safety Report 13950694 (Version 1)
Quarter: 2017Q3

REPORT INFORMATION
  Report Type: Spontaneous
  Country: JP (occurrence: JP)
  Receive Date: 20170908
  Receipt Date: 20170908
  Transmission Date: 20171128
  Serious: Yes (Other)
  Sender: FDA-Public Use
  Company Number: JP-ABBVIE-17P-087-2095877-00

PATIENT
  Sex: Female

DRUGS (2)
  1. LEUPRORELIN ACETATE [Suspect]
     Active Substance: LEUPROLIDE ACETATE
     Indication: BREAST CANCER FEMALE
     Dosage: UNK, Q3MONTHS
     Route: 058
  2. TAMOXIFEN CITRATE. [Concomitant]
     Active Substance: TAMOXIFEN CITRATE
     Indication: BREAST CANCER FEMALE
     Route: 048

REACTIONS (13)
  - Injection site induration [Unknown]
  - Glucose tolerance impaired [Unknown]
  - Hot flush [Unknown]
  - Genital haemorrhage [Unknown]
  - Depression [Unknown]
  - Uterine cancer [Unknown]
  - Hyperlipidaemia [Unknown]
  - Genital herpes [Unknown]
  - Insomnia [Unknown]
  - Constipation [Unknown]
  - Endometrial thickening [Unknown]
  - Dizziness [Unknown]
  - Weight increased [Unknown]
